FAERS Safety Report 11087089 (Version 1)
Quarter: 2015Q2

REPORT INFORMATION
  Report Type: Spontaneous
  Country: US (occurrence: US)
  Receive Date: 20150504
  Receipt Date: 20150504
  Transmission Date: 20150821
  Serious: No
  Sender: FDA-Public Use
  Company Number: US-BAYER-2015-181623

PATIENT
  Age: 72 Year
  Sex: Female

DRUGS (1)
  1. ALEVE [Suspect]
     Active Substance: NAPROXEN SODIUM
     Indication: ARTHRITIS
     Dosage: 2 DF, PRN
     Route: 048
     Dates: start: 2014, end: 201504

REACTIONS (3)
  - Haematology test abnormal [Recovered/Resolved]
  - Dyspnoea [Recovered/Resolved]
  - Dizziness [Recovered/Resolved]

NARRATIVE: CASE EVENT DATE: 201412
